FAERS Safety Report 7470591-5 (Version None)
Quarter: 2011Q2

REPORT INFORMATION
  Report Type: 
  Country: None (occurrence: None)
  Receive Date: 20110510
  Receipt Date: 20110429
  Transmission Date: 20111010
  Serious: Yes (Hospitalization)
  Sender: FDA-Public Use
  Company Number: US-JNJFOC-20110502649

PATIENT
  Age: 12 Year

DRUGS (2)
  1. ACETAMINOPHEN [Suspect]
     Indication: PAIN IN EXTREMITY
  2. ACETAMINOPHEN [Suspect]

REACTIONS (3)
  - BLOOD TEST ABNORMAL [None]
  - VOMITING [None]
  - ACCIDENTAL OVERDOSE [None]
